FAERS Safety Report 8591910-2 (Version None)
Quarter: 2012Q3

REPORT INFORMATION
  Report Type: 
  Country: None (occurrence: None)
  Receive Date: 20120814
  Receipt Date: 20120803
  Transmission Date: 20120928
  Serious: Yes (Hospitalization, Other)
  Sender: FDA-Public Use
  Company Number: FR-GENZYME-THYM-1003362

PATIENT
  Sex: Female

DRUGS (7)
  1. CYCLOPHOSPHAMIDE [Suspect]
     Indication: PRODUCT USED FOR UNKNOWN INDICATION
     Dosage: 3900 MG, UNK
     Route: 042
     Dates: start: 20120603
  2. METHOTREXATE [Suspect]
     Dosage: 17.6 MG, UNK
     Route: 065
     Dates: start: 20120610
  3. METHOTREXATE [Suspect]
     Dosage: 17.6 MG, UNK
     Route: 065
     Dates: start: 20120613
  4. THYMOGLOBULIN [Suspect]
     Indication: PRODUCT USED FOR UNKNOWN INDICATION
     Dosage: 0.5 MG/KG, UNK
     Route: 065
     Dates: start: 20120604
  5. THYMOGLOBULIN [Suspect]
     Dosage: 2 MG/KG, UNK
     Route: 065
     Dates: start: 20120605
  6. THYMOGLOBULIN [Suspect]
     Dosage: 2.5 MG/KG, UNK
     Route: 065
     Dates: start: 20120606
  7. METHOTREXATE [Suspect]
     Indication: PRODUCT USED FOR UNKNOWN INDICATION
     Dosage: 26.5 UNK, UNK
     Route: 065
     Dates: start: 20120608

REACTIONS (11)
  - HEPATOMEGALY [None]
  - OLIGURIA [None]
  - STAPHYLOCOCCAL INFECTION [None]
  - RESPIRATORY FAILURE [None]
  - THROMBOCYTOPENIA [None]
  - FLUID RETENTION [None]
  - HYPERTHERMIA [None]
  - RENAL FAILURE [None]
  - BICYTOPENIA [None]
  - WEIGHT INCREASED [None]
  - HEPATIC PAIN [None]
